FAERS Safety Report 17501905 (Version 2)
Quarter: 2021Q4

REPORT INFORMATION
  Report Type: Report from Study
  Country: DE (occurrence: DE)
  Receive Date: 20200305
  Receipt Date: 20211214
  Transmission Date: 20220304
  Serious: Yes (Hospitalization)
  Sender: FDA-Public Use
  Company Number: DE-ACCORD-170221

PATIENT
  Sex: Female
  Weight: 81 kg

DRUGS (4)
  1. PEGFILGRASTIM [Suspect]
     Active Substance: PEGFILGRASTIM
     Indication: Product used for unknown indication
     Dosage: 6 MILLIGRAM, CYCLE(STRENGTH: 6 MG, FIRST CYCLE)
     Route: 058
     Dates: start: 20190911
  2. PEGFILGRASTIM [Suspect]
     Active Substance: PEGFILGRASTIM
     Dosage: 6 MILLIGRAM, CYCLE(STRENGTH: 6 MG, SECOND CYCLE)
     Dates: start: 20191001
  3. PEGFILGRASTIM [Suspect]
     Active Substance: PEGFILGRASTIM
     Dosage: 6 MILLIGRAM, CYCLE(STRENGTH: 6 MG, THIRD CYCLE)
     Dates: start: 20191022
  4. PEGFILGRASTIM [Suspect]
     Active Substance: PEGFILGRASTIM
     Dosage: 6 MILLIGRAM, CYCLE(STRENGTH: 6 MG, FOURTH CYCLE)
     Dates: start: 20191112

REACTIONS (2)
  - Stomatitis [Recovered/Resolved]
  - Dehydration [Recovered/Resolved]

NARRATIVE: CASE EVENT DATE: 20190920
